FAERS Safety Report 6179986-3 (Version None)
Quarter: 2009Q2

REPORT INFORMATION
  Report Type: 
  Country: None (occurrence: None)
  Receive Date: 20090501
  Receipt Date: 20090422
  Transmission Date: 20091009
  Serious: Yes (Other)
  Sender: FDA-Public Use
  Company Number: SPV1-2009-00787

PATIENT
  Age: 57 Year
  Sex: Male

DRUGS (2)
  1. FOSRENOL [Suspect]
     Indication: HYPERPHOSPHATAEMIA
     Dosage: 1 TABLET EACH MEAL
  2. RENAGEL [Suspect]

REACTIONS (6)
  - ABDOMINAL DISTENSION [None]
  - CHOLECYSTECTOMY [None]
  - FLATULENCE [None]
  - GASTROINTESTINAL HAEMORRHAGE [None]
  - NEPHROLITHIASIS [None]
  - PANCREATITIS [None]
